FAERS Safety Report 22173221 (Version 1)
Quarter: 2023Q2

REPORT INFORMATION
  Report Type: Spontaneous
  Country: US (occurrence: US)
  Receive Date: 20230404
  Receipt Date: 20230404
  Transmission Date: 20230722
  Serious: No
  Sender: FDA-Public Use
  Company Number: US-TEVA-2023-US-2868452

PATIENT
  Age: 67 Year
  Sex: Female

DRUGS (3)
  1. ALPRAZOLAM [Suspect]
     Active Substance: ALPRAZOLAM
     Indication: Anxiety disorder
     Route: 065
  2. ALPRAZOLAM [Suspect]
     Active Substance: ALPRAZOLAM
     Indication: Panic disorder
     Dosage: CUT IT INTO 4 PIECES
     Route: 065
  3. ALPRAZOLAM [Suspect]
     Active Substance: ALPRAZOLAM
     Dosage: .75 MILLIGRAM DAILY; ONE 0.5MG AND A HALF OF A 0.5MG TO MAKE 0.75MG
     Route: 065

REACTIONS (13)
  - Dyspnoea [Not Recovered/Not Resolved]
  - Confusional state [Not Recovered/Not Resolved]
  - Asthenia [Unknown]
  - Mental disorder [Unknown]
  - General physical condition abnormal [Unknown]
  - Dyspnoea [Unknown]
  - Somnolence [Unknown]
  - Wrong technique in product usage process [Unknown]
  - Treatment noncompliance [Not Recovered/Not Resolved]
  - Hyperventilation [Unknown]
  - Fatigue [Unknown]
  - Hyperhidrosis [Unknown]
  - Depression [Unknown]

NARRATIVE: CASE EVENT DATE: 20230310
